FAERS Safety Report 4773933-4 (Version None)
Quarter: 2005Q3

REPORT INFORMATION
  Report Type: 
  Country: None (occurrence: None)
  Receive Date: 20050919
  Receipt Date: 20050909
  Transmission Date: 20060218
  Serious: Yes (Hospitalization)
  Sender: FDA-Public Use
  Company Number: KII-2005-0018609

PATIENT
  Age: 61 Year
  Sex: Male

DRUGS (9)
  1. MORPHINE SULFATE [Suspect]
     Dosage: ORAL
     Route: 048
  2. TRAMADOL HCL [Suspect]
  3. BUPROPION HCL [Suspect]
     Dosage: ORAL
     Route: 048
  4. AMLODIPINE BESYLATE AND BENAZEPRIL HCL [Suspect]
     Dosage: ORAL
     Route: 048
  5. MEMANTINE HCL [Suspect]
     Dosage: ORAL
     Route: 048
  6. SSRI () [Suspect]
     Dosage: ORAL
     Route: 048
  7. ANTIEPILEPTICS () [Suspect]
     Dosage: ORAL
     Route: 048
  8. DIURETICS () [Suspect]
     Dosage: ORAL
     Route: 048
  9. ANTIPSYCHOTICS() [Suspect]
     Dosage: ORAL
     Route: 048

REACTIONS (3)
  - BLOOD GLUCOSE INCREASED [None]
  - BLOOD PRESSURE DECREASED [None]
  - ELECTROCARDIOGRAM QT CORRECTED INTERVAL PROLONGED [None]
